FAERS Safety Report 17903375 (Version 1)
Quarter: 2020Q2

REPORT INFORMATION
  Report Type: Other
  Country: CA (occurrence: CA)
  Receive Date: 20200617
  Receipt Date: 20200617
  Transmission Date: 20200714
  Serious: Yes (Life-Threatening, Hospitalization)
  Sender: FDA-Public Use
  Company Number: CA-APOTEX-2020AP011987

PATIENT
  Age: 51 Year
  Sex: Male
  Weight: 88 kg

DRUGS (1)
  1. AMLODIPINE [Suspect]
     Active Substance: AMLODIPINE BESYLATE
     Indication: HYPERTENSION
     Dosage: 5 MG, QD
     Route: 048

REACTIONS (6)
  - Blood pressure increased [Recovered/Resolved]
  - Condition aggravated [Recovered/Resolved]
  - Weight decreased [Recovered/Resolved]
  - Discomfort [Recovered/Resolved]
  - Heart rate increased [Recovered/Resolved]
  - Head discomfort [Recovered/Resolved]
